FAERS Safety Report 6083961-7 (Version None)
Quarter: 2009Q1

REPORT INFORMATION
  Report Type: 
  Country: None (occurrence: None)
  Receive Date: 20090204
  Receipt Date: 20071010
  Transmission Date: 20090719
  Serious: No
  Sender: FDA-Public Use
  Company Number: 268415

PATIENT
  Sex: Female

DRUGS (1)
  1. NOVOLOG [Suspect]
     Indication: DIABETES MELLITUS
     Dosage: SUBCUTAN.-PUMP
     Route: 058
     Dates: start: 20050621

REACTIONS (3)
  - HYPERGLYCAEMIA [None]
  - SWELLING FACE [None]
  - URTICARIA [None]
